FAERS Safety Report 17394008 (Version 2)
Quarter: 2020Q3

REPORT INFORMATION
  Report Type: Spontaneous
  Country: US (occurrence: US)
  Receive Date: 20200210
  Receipt Date: 20200710
  Transmission Date: 20201102
  Serious: No
  Sender: FDA-Public Use
  Company Number: US-AMGEN-USASP2020020274

PATIENT
  Age: 23 Year
  Sex: Female

DRUGS (1)
  1. ENBREL [Suspect]
     Active Substance: ETANERCEPT
     Indication: PRODUCT USED FOR UNKNOWN INDICATION
     Dosage: UNK
     Route: 065

REACTIONS (5)
  - Drug hypersensitivity [Unknown]
  - Injection site pain [Unknown]
  - Fear of injection [Unknown]
  - Injection site reaction [Unknown]
  - Injection site rash [Unknown]
